FAERS Safety Report 11467701 (Version 5)
Quarter: 2016Q3

REPORT INFORMATION
  Report Type: Report from Study
  Country: BR (occurrence: BR)
  Receive Date: 20150908
  Receipt Date: 20160711
  Transmission Date: 20161109
  Serious: Yes (Hospitalization, Other)
  Sender: FDA-Public Use
  Company Number: PHHY2015BR107109

PATIENT
  Sex: Male
  Weight: 60 kg

DRUGS (2)
  1. EXJADE [Suspect]
     Active Substance: DEFERASIROX
     Indication: THALASSAEMIA BETA
     Dosage: 25 MG/KG, QD (3 DISPERSIBLE TABLET OF 500 MG: 1500 MG)
     Route: 048
  2. FOLIC ACID. [Concomitant]
     Active Substance: FOLIC ACID
     Indication: PRODUCT USED FOR UNKNOWN INDICATION
     Dosage: UNK UNK, QD (IN THE MORNING)
     Route: 065

REACTIONS (15)
  - Weight decreased [Unknown]
  - Ischaemic cardiomyopathy [Unknown]
  - Coronary artery insufficiency [Unknown]
  - Memory impairment [Unknown]
  - Blood disorder [Unknown]
  - Dizziness [Unknown]
  - Inappropriate schedule of drug administration [Unknown]
  - Platelet count decreased [Unknown]
  - Hepatic mass [Unknown]
  - Ageusia [Unknown]
  - Blood iron increased [Unknown]
  - Asthenia [Unknown]
  - Syncope [Unknown]
  - Liver disorder [Unknown]
  - Arrhythmia [Unknown]
